FAERS Safety Report 6677693-1 (Version None)
Quarter: 2010Q2

REPORT INFORMATION
  Report Type: 
  Country: None (occurrence: None)
  Receive Date: 20100412
  Receipt Date: 20100315
  Transmission Date: 20101027
  Serious: No
  Sender: FDA-Public Use
  Company Number: US-ALEXION-A201000294

PATIENT
  Sex: Male

DRUGS (6)
  1. SOLIRIS [Suspect]
     Indication: PAROXYSMAL NOCTURNAL HAEMOGLOBINURIA
     Dosage: E05 STUDY
     Route: 042
  2. SOLIRIS [Suspect]
     Dosage: 900 MG, Q2W
     Route: 042
  3. TRAMADOL HCL [Concomitant]
     Indication: PAIN
     Dosage: 1, PRN
     Route: 048
  4. ASPIRIN [Concomitant]
     Indication: ANTICOAGULANT THERAPY
     Dosage: 81 MG, QD
     Route: 048
  5. FOLIC ACID [Concomitant]
     Dosage: 1, QD
     Route: 048
  6. PHENERGAN HCL [Concomitant]
     Indication: NAUSEA
     Dosage: 1, PRN
     Route: 048

REACTIONS (5)
  - ABDOMINAL PAIN UPPER [None]
  - BACK PAIN [None]
  - CHROMATURIA [None]
  - FATIGUE [None]
  - STRESS [None]
